FAERS Safety Report 20420889 (Version 1)
Quarter: 2022Q1

REPORT INFORMATION
  Report Type: Spontaneous
  Country: US (occurrence: None)
  Receive Date: 20220202
  Receipt Date: 20220202
  Transmission Date: 20220424
  Serious: Yes (Other)
  Sender: FDA-Public Use
  Company Number: None

PATIENT
  Age: 62 Year
  Sex: Female
  Weight: 57.15 kg

DRUGS (6)
  1. STELARA [Suspect]
     Active Substance: USTEKINUMAB
     Indication: Crohn^s disease
     Dosage: OTHER QUANTITY : 1 INJECTION(S);?OTHER FREQUENCY : 8 WEEKS;?
     Route: 042
     Dates: start: 20210924, end: 20210924
  2. POLYETHYLENE GLYCOL [Concomitant]
     Active Substance: POLYETHYLENE GLYCOL
  3. CYANOCOBALAMIN [Concomitant]
     Active Substance: CYANOCOBALAMIN
  4. VITAMIN D NOS [Concomitant]
     Active Substance: VITAMIN D NOS
  5. oxytrol patch [Concomitant]
  6. Panthera [Concomitant]

REACTIONS (2)
  - Sinusitis [None]
  - Ear infection [None]

NARRATIVE: CASE EVENT DATE: 20210930
